FAERS Safety Report 16565008 (Version 1)
Quarter: 2019Q3

REPORT INFORMATION
  Report Type: Spontaneous
  Country: US (occurrence: US)
  Receive Date: 20190530
  Receipt Date: 20190530
  Transmission Date: 20191004
  Serious: No
  Sender: FDA-Public Use
  Company Number: None

PATIENT
  Age: 39 Year
  Sex: Male

DRUGS (1)
  1. EPCLUSA [Suspect]
     Active Substance: SOFOSBUVIR\VELPATASVIR
     Route: 048
     Dates: start: 20190502

REACTIONS (6)
  - Headache [None]
  - Cold sweat [None]
  - Apathy [None]
  - Chills [None]
  - Feeling hot [None]
  - Amnesia [None]

NARRATIVE: CASE EVENT DATE: 20190530
